FAERS Safety Report 8444036-2 (Version None)
Quarter: 2012Q2

REPORT INFORMATION
  Report Type: 
  Country: None (occurrence: None)
  Receive Date: 20120618
  Receipt Date: 20120612
  Transmission Date: 20120825
  Serious: Yes (Other)
  Sender: FDA-Public Use
  Company Number: PHHY2012AR051364

PATIENT
  Age: 50 Year
  Sex: Female

DRUGS (2)
  1. PARLODEL [Concomitant]
     Dates: start: 19850101
  2. TEGRETOL [Suspect]
     Indication: ENCEPHALITIS
     Dosage: 200 MG, DAILY
     Dates: start: 19760101

REACTIONS (1)
  - TOXICITY TO VARIOUS AGENTS [None]
